FAERS Safety Report 17823801 (Version 1)
Quarter: 2020Q2

REPORT INFORMATION
  Report Type: Spontaneous
  Country: US (occurrence: US)
  Receive Date: 20200522
  Receipt Date: 20200522
  Transmission Date: 20200714
  Serious: No
  Sender: FDA-Public Use
  Company Number: None

PATIENT
  Sex: Male

DRUGS (1)
  1. HUMIRA [Suspect]
     Active Substance: ADALIMUMAB
     Indication: COLITIS ULCERATIVE
     Dosage: THERAPY START DATE: 17-JUN-2020
     Route: 058

REACTIONS (3)
  - Drug ineffective [None]
  - Therapy change [None]
  - Colitis ulcerative [None]
